FAERS Safety Report 9720130 (Version 1)
Quarter: 2013Q4

REPORT INFORMATION
  Report Type: Spontaneous
  Country: CA (occurrence: CA)
  Receive Date: 20131128
  Receipt Date: 20131128
  Transmission Date: 20140711
  Serious: Yes (Life-Threatening, Other)
  Sender: FDA-Public Use
  Company Number: CA-BRISTOL-MYERS SQUIBB COMPANY-19840685

PATIENT
  Sex: Male

DRUGS (1)
  1. ERBITUX [Suspect]
     Indication: HEAD AND NECK CANCER
     Dosage: THE FOLLOWING DOSES:07-OCT-2013, 15-OCT-2013, 22-OCT-2013 AND THEN ON 29-OCT-2013?5 DOSES
     Route: 042
     Dates: start: 20131001

REACTIONS (2)
  - Oropharyngeal cancer recurrent [Recovered/Resolved]
  - Pneumonia aspiration [Recovered/Resolved]
